FAERS Safety Report 12118928 (Version 1)
Quarter: 2016Q1

REPORT INFORMATION
  Report Type: Spontaneous
  Country: US (occurrence: US)
  Receive Date: 20160226
  Receipt Date: 20160226
  Transmission Date: 20160526
  Serious: No
  Sender: FDA-Public Use
  Company Number: US-PFIZER INC-2016090043

PATIENT
  Sex: Male

DRUGS (1)
  1. PANTOPRAZOLE [Suspect]
     Active Substance: PANTOPRAZOLE SODIUM

REACTIONS (5)
  - Gastric disorder [Unknown]
  - Discomfort [Unknown]
  - Muscle spasms [Unknown]
  - Eructation [Unknown]
  - Drug ineffective [Unknown]
